FAERS Safety Report 4346491-6 (Version None)
Quarter: 2004Q2

REPORT INFORMATION
  Report Type: 
  Country: None (occurrence: None)
  Receive Date: 20040426
  Receipt Date: 20030904
  Transmission Date: 20050107
  Serious: No
  Sender: FDA-Public Use
  Company Number: US-BRISTOL-MYERS SQUIBB COMPANY-12374633

PATIENT
  Age: 41 Year
  Sex: Female

DRUGS (6)
  1. PARAPLATIN [Suspect]
     Indication: LUNG NEOPLASM MALIGNANT
     Dosage: ADDITIONAL LOT # 3G72927, EXP. DATE 31-OCT-2005, 50 MG VIALS CYCLE 1: 07-AUG-2003
     Route: 042
     Dates: start: 20030827, end: 20030903
  2. TAXOL [Concomitant]
     Indication: LUNG NEOPLASM MALIGNANT
     Dosage: 60 OR 90 MG WEEKLY
  3. ANZEMET [Concomitant]
     Indication: PREMEDICATION
  4. DECADRON [Concomitant]
     Indication: PREMEDICATION
  5. BENADRYL [Concomitant]
     Indication: PREMEDICATION
  6. PEPCID [Concomitant]
     Indication: PREMEDICATION

REACTIONS (4)
  - CHILLS [None]
  - FLUSHING [None]
  - NAUSEA [None]
  - VOMITING [None]
